FAERS Safety Report 5767383-1 (Version None)
Quarter: 2008Q2

REPORT INFORMATION
  Report Type: 
  Country: None (occurrence: None)
  Receive Date: 20080612
  Receipt Date: 20080609
  Transmission Date: 20081010
  Serious: Yes (Death, Hospitalization)
  Sender: FDA-Public Use
  Company Number: B0523415A

PATIENT
  Age: 86 Year
  Sex: Female
  Weight: 54 kg

DRUGS (13)
  1. ARIXTRA [Suspect]
     Dosage: 7.5MG PER DAY
     Route: 058
     Dates: start: 20080409, end: 20080412
  2. PREVISCAN [Suspect]
     Dosage: 20MG PER DAY
     Route: 048
     Dates: end: 20080416
  3. KARDEGIC [Suspect]
     Indication: PROPHYLAXIS
     Dosage: 160MG PER DAY
     Route: 048
     Dates: end: 20080416
  4. LOPRIL [Concomitant]
     Dosage: 75MG PER DAY
     Route: 065
  5. CORDARONE [Concomitant]
     Dosage: .5UNIT PER DAY
     Route: 065
  6. LASILIX [Concomitant]
     Dosage: 20MG PER DAY
     Route: 065
  7. ATHYMIL [Concomitant]
     Dosage: 15MG PER DAY
     Route: 065
  8. PANTOPRAZOLE SODIUM [Concomitant]
     Dosage: 20MG PER DAY
     Route: 065
  9. LEVOTHYROXINE SODIUM [Concomitant]
     Dosage: 75MCG PER DAY
     Route: 065
  10. TARDYFERON [Concomitant]
     Route: 065
  11. VITAMIN K TAB [Concomitant]
     Route: 065
     Dates: start: 20080408
  12. CALCIPARINE [Concomitant]
     Dosage: .5ML SINGLE DOSE
     Route: 058
  13. IMOVANE [Concomitant]
     Route: 065

REACTIONS (9)
  - ATRIAL FIBRILLATION [None]
  - BUNDLE BRANCH BLOCK RIGHT [None]
  - CHEST PAIN [None]
  - FLANK PAIN [None]
  - INCORRECT DOSE ADMINISTERED [None]
  - PAIN IN EXTREMITY [None]
  - POST PROCEDURAL HAEMORRHAGE [None]
  - PULMONARY EMBOLISM [None]
  - RETROPERITONEAL HAEMATOMA [None]
